FAERS Safety Report 19737280 (Version 2)
Quarter: 2023Q1

REPORT INFORMATION
  Report Type: Spontaneous
  Country: US (occurrence: US)
  Receive Date: 20210824
  Receipt Date: 20230323
  Transmission Date: 20230417
  Serious: Yes (Other)
  Sender: FDA-Public Use
  Company Number: US-GLAXOSMITHKLINE-US2021GSK177904

PATIENT
  Sex: Female

DRUGS (17)
  1. ZANTAC [Suspect]
     Active Substance: RANITIDINE HYDROCHLORIDE
     Indication: Gastric ulcer
     Dosage: 150 MG, QD
     Route: 065
     Dates: start: 200701, end: 201301
  2. ZANTAC [Suspect]
     Active Substance: RANITIDINE HYDROCHLORIDE
     Indication: Abdominal pain upper
     Dosage: 150 MG, BID
     Route: 065
     Dates: start: 2008, end: 2014
  3. ZANTAC [Suspect]
     Active Substance: RANITIDINE HYDROCHLORIDE
     Indication: Gastric ulcer
     Dosage: 75 MG, QD
     Route: 065
     Dates: start: 200701, end: 201301
  4. ZANTAC [Suspect]
     Active Substance: RANITIDINE HYDROCHLORIDE
     Indication: Abdominal pain upper
     Dosage: 150 MG, QD
     Route: 065
     Dates: start: 200701, end: 201301
  5. ZANTAC [Suspect]
     Active Substance: RANITIDINE HYDROCHLORIDE
     Dosage: 150 MG, BID
     Route: 065
     Dates: start: 2008, end: 2014
  6. RANITIDINE [Suspect]
     Active Substance: RANITIDINE
     Indication: Abdominal pain upper
     Dosage: UNK, BID
     Route: 065
     Dates: start: 2008, end: 2014
  7. RANITIDINE [Suspect]
     Active Substance: RANITIDINE
     Indication: Gastric ulcer
  8. RANITIDINE [Suspect]
     Active Substance: RANITIDINE
     Indication: Abdominal pain upper
     Dosage: UNK, BID
     Route: 065
     Dates: start: 2008, end: 2014
  9. RANITIDINE [Suspect]
     Active Substance: RANITIDINE
     Indication: Gastric ulcer
  10. ZANTAC [Suspect]
     Active Substance: RANITIDINE HYDROCHLORIDE
     Indication: Gastric ulcer
     Dosage: 75 MG BOTH
     Route: 065
     Dates: start: 200701, end: 201301
  11. ZANTAC [Suspect]
     Active Substance: RANITIDINE HYDROCHLORIDE
     Indication: Abdominal pain upper
     Dosage: 150 MG, QD
     Route: 065
     Dates: start: 200701, end: 201301
  12. ZANTAC [Suspect]
     Active Substance: RANITIDINE HYDROCHLORIDE
     Dosage: 150 MG, BID
     Route: 065
     Dates: start: 2008, end: 2014
  13. RANITIDINE [Suspect]
     Active Substance: RANITIDINE
     Indication: Gastric ulcer
     Dosage: 75 MG, QD
     Route: 065
     Dates: start: 200701, end: 201301
  14. RANITIDINE [Suspect]
     Active Substance: RANITIDINE
     Indication: Abdominal pain upper
     Dosage: 150 MG, QD
     Route: 065
     Dates: start: 200701, end: 201301
  15. RANITIDINE [Suspect]
     Active Substance: RANITIDINE
     Dosage: 150 MG, BID
     Route: 065
     Dates: start: 2008, end: 2014
  16. RANITIDINE [Suspect]
     Active Substance: RANITIDINE
     Indication: Gastric ulcer
     Dosage: UNK, BID
     Route: 065
     Dates: start: 2008, end: 2014
  17. RANITIDINE [Suspect]
     Active Substance: RANITIDINE
     Indication: Abdominal pain upper

REACTIONS (1)
  - Breast cancer [Unknown]
